FAERS Safety Report 13234135 (Version 1)
Quarter: 2017Q1

REPORT INFORMATION
  Report Type: Spontaneous
  Country: US (occurrence: US)
  Receive Date: 20170214
  Receipt Date: 20170214
  Transmission Date: 20170428
  Serious: Yes (Disabling)
  Sender: FDA-Public Use
  Company Number: None

PATIENT
  Age: 28 Year
  Sex: Female
  Weight: 62.1 kg

DRUGS (1)
  1. CIPROFLOXACIN. [Suspect]
     Active Substance: CIPROFLOXACIN
     Indication: BRONCHITIS
     Dosage: ?          QUANTITY:28 TABLET(S);?
     Route: 048

REACTIONS (9)
  - Joint stiffness [None]
  - Carpal tunnel syndrome [None]
  - Arthralgia [None]
  - Pain [None]
  - Joint crepitation [None]
  - Muscle spasms [None]
  - Headache [None]
  - Fatigue [None]
  - Chills [None]

NARRATIVE: CASE EVENT DATE: 20170207
